FAERS Safety Report 16330761 (Version 1)
Quarter: 2019Q2

REPORT INFORMATION
  Report Type: Spontaneous
  Country: US (occurrence: US)
  Receive Date: 20190517
  Receipt Date: 20190517
  Transmission Date: 20190711
  Serious: Yes (Hospitalization)
  Sender: FDA-Public Use
  Company Number: None

PATIENT
  Age: 58 Year
  Sex: Female

DRUGS (19)
  1. SILDENAFIL. [Suspect]
     Active Substance: SILDENAFIL
     Indication: PULMONARY HYPERTENSION
     Route: 048
     Dates: start: 20170708
  2. ALLOPURINOL. [Concomitant]
     Active Substance: ALLOPURINOL
  3. BUMETANIDE. [Concomitant]
     Active Substance: BUMETANIDE
  4. FEROSUL [Concomitant]
  5. ALENDRONATE [Concomitant]
     Active Substance: ALENDRONATE SODIUM
  6. LISINOPRIL. [Concomitant]
     Active Substance: LISINOPRIL
  7. METOPROL TAR [Concomitant]
  8. SULFASALAZINE DELAYED-RELEASE [Concomitant]
     Active Substance: SULFASALAZINE
  9. TRAMADOL. [Concomitant]
     Active Substance: TRAMADOL
  10. ATORVASTATIN [Concomitant]
     Active Substance: ATORVASTATIN
  11. HYDROXCHLOR [Concomitant]
  12. TORSEMIDE. [Concomitant]
     Active Substance: TORSEMIDE
  13. ELIQUS [Concomitant]
  14. METOPROL SUC [Concomitant]
  15. OMEPRAZOLE. [Concomitant]
     Active Substance: OMEPRAZOLE
  16. ASPIRIN. [Concomitant]
     Active Substance: ASPIRIN
  17. IRON [Concomitant]
     Active Substance: IRON
  18. LEVOTHYROXIN [Concomitant]
     Active Substance: LEVOTHYROXINE
  19. OYSCO [Concomitant]

REACTIONS (2)
  - Pneumonia [None]
  - Therapy cessation [None]
